FAERS Safety Report 11466657 (Version 2)
Quarter: 2015Q3

REPORT INFORMATION
  Report Type: Spontaneous
  Country: IT (occurrence: IT)
  Receive Date: 20150907
  Receipt Date: 20150928
  Transmission Date: 20151125
  Serious: Yes (Hospitalization)
  Sender: FDA-Public Use
  Company Number: IT-SA-2015SA132233

PATIENT
  Age: 87 Year
  Sex: Male

DRUGS (7)
  1. ZOTON [Concomitant]
     Active Substance: LANSOPRAZOLE
     Dosage: STRENGTH: 30 MG
     Route: 048
  2. COAPROVEL [Suspect]
     Active Substance: HYDROCHLOROTHIAZIDE\IRBESARTAN
     Dosage: DOSE:1 UNIT(S)
     Route: 048
  3. LASIX [Suspect]
     Active Substance: FUROSEMIDE
     Route: 048
  4. TRITTICO [Suspect]
     Active Substance: TRAZODONE HYDROCHLORIDE
     Dosage: FORM:PROLONGED RELEASE DIVISIBLE TABLET DOSE:1 UNIT(S)
     Route: 048
  5. IBUSTRIN [Concomitant]
  6. OMERIA [Concomitant]
     Dosage: STRENGTH: 6.25 MG; FORM: DIVISIBLE TABLET
     Route: 048
  7. NITROGLYCERINE [Concomitant]
     Active Substance: NITROGLYCERIN
     Dosage: STRENGTH: 10 MG
     Route: 062

REACTIONS (2)
  - Hyponatraemia [Recovered/Resolved]
  - Dyspnoea [Recovered/Resolved]

NARRATIVE: CASE EVENT DATE: 20131001
